FAERS Safety Report 11696199 (Version 1)
Quarter: 2015Q4

REPORT INFORMATION
  Report Type: Spontaneous
  Country: US (occurrence: US)
  Receive Date: 20151104
  Receipt Date: 20151104
  Transmission Date: 20160304
  Serious: No
  Sender: FDA-Public Use
  Company Number: US-BAYER-2015-460029

PATIENT
  Age: 19 Year
  Sex: Female
  Weight: 52.15 kg

DRUGS (1)
  1. ALEVE [Suspect]
     Active Substance: NAPROXEN SODIUM
     Indication: PAIN
     Dosage: 18 DF

REACTIONS (3)
  - Hypoaesthesia [None]
  - Dyspnoea [None]
  - Product use issue [None]
